FAERS Safety Report 25274028 (Version 1)
Quarter: 2025Q2

REPORT INFORMATION
  Report Type: Spontaneous
  Country: US (occurrence: US)
  Receive Date: 20250506
  Receipt Date: 20250506
  Transmission Date: 20250717
  Serious: Yes (Hospitalization, Other)
  Sender: RECKITT BENCKISER
  Company Number: US-INDIVIOR US-INDV-160622-2025

PATIENT

DRUGS (1)
  1. OPVEE [Suspect]
     Active Substance: NALMEFENE HYDROCHLORIDE
     Indication: Drug withdrawal syndrome
     Route: 065
     Dates: start: 202504

REACTIONS (4)
  - Pneumonia aspiration [Unknown]
  - Drug withdrawal syndrome [Unknown]
  - Condition aggravated [Unknown]
  - Off label use [Recovered/Resolved]

NARRATIVE: CASE EVENT DATE: 20250401
